FAERS Safety Report 10010688 (Version 1)
Quarter: 2014Q1

REPORT INFORMATION
  Report Type: Report from Study
  Country: US (occurrence: US)
  Receive Date: 20140314
  Receipt Date: 20140314
  Transmission Date: 20141002
  Serious: Yes (Other)
  Sender: FDA-Public Use
  Company Number: US-ASTRAZENECA-2014SE16165

PATIENT
  Age: 65 Year
  Sex: Female
  Weight: 61.2 kg

DRUGS (1)
  1. SYMBICORT [Suspect]
     Dosage: 80-4.5 BID
     Route: 055
     Dates: start: 2012

REACTIONS (1)
  - Visual impairment [Not Recovered/Not Resolved]
